FAERS Safety Report 7593271-4 (Version None)
Quarter: 2011Q3

REPORT INFORMATION
  Report Type: 
  Country: None (occurrence: None)
  Receive Date: 20110706
  Receipt Date: 20110628
  Transmission Date: 20111222
  Serious: Yes (Life-Threatening, Hospitalization, Other)
  Sender: FDA-Public Use
  Company Number: US-GENZYME-THYM-1001868

PATIENT
  Sex: Male
  Weight: 82 kg

DRUGS (36)
  1. LANSOPRAZOLE [Concomitant]
     Indication: PRODUCT USED FOR UNKNOWN INDICATION
     Dosage: 30 MG, QD
     Route: 065
  2. METOPROLOL TARTRATE [Concomitant]
     Indication: PRODUCT USED FOR UNKNOWN INDICATION
     Dosage: 50 MG, BID
     Route: 065
  3. SENNA [Concomitant]
     Indication: PRODUCT USED FOR UNKNOWN INDICATION
     Route: 065
  4. THYMOGLOBULIN [Suspect]
     Indication: BONE MARROW CONDITIONING REGIMEN
     Dosage: UNK
     Route: 042
     Dates: start: 20100524, end: 20100524
  5. THYMOGLOBULIN [Suspect]
     Dosage: UNK
     Route: 042
     Dates: start: 20100524, end: 20100524
  6. VALGANCICLOVIR [Concomitant]
     Indication: PRODUCT USED FOR UNKNOWN INDICATION
     Dosage: 450 MG, QD
     Route: 065
     Dates: end: 20100917
  7. DOCUSATE SODIUM [Concomitant]
     Indication: PRODUCT USED FOR UNKNOWN INDICATION
     Dosage: UNK
     Route: 065
  8. TOTAL LYMPHOID IRRADIATION [Concomitant]
     Indication: BONE MARROW CONDITIONING REGIMEN
     Dosage: UNK
     Dates: start: 20100529, end: 20100602
  9. ATOVAQUONE [Concomitant]
     Indication: PRODUCT USED FOR UNKNOWN INDICATION
     Dosage: 1500 MG, QD
     Route: 065
  10. FLUTICASONE PROPIONATE [Concomitant]
     Indication: PRODUCT USED FOR UNKNOWN INDICATION
  11. THYMOGLOBULIN [Suspect]
     Dosage: UNK
     Route: 042
     Dates: start: 20100526, end: 20100526
  12. GLYBURIDE [Concomitant]
     Indication: PRODUCT USED FOR UNKNOWN INDICATION
     Dosage: 2.5 MG, QD
     Route: 065
  13. LORAZEPAM [Concomitant]
     Indication: ANXIETY
  14. METFORMIN HCL [Concomitant]
     Indication: PRODUCT USED FOR UNKNOWN INDICATION
     Dosage: 1000 MG, BID
     Route: 065
  15. ACETAMINOPHEN [Concomitant]
     Indication: PRODUCT USED FOR UNKNOWN INDICATION
     Dosage: 325 MG, PRN
     Route: 065
  16. MAGNESIUM OXIDE [Concomitant]
     Indication: PRODUCT USED FOR UNKNOWN INDICATION
     Dosage: 133 MG, TID
     Route: 065
  17. MULTIVITAMIN AND MINERAL [Concomitant]
     Indication: PRODUCT USED FOR UNKNOWN INDICATION
     Dosage: UNK
     Route: 065
  18. VARDENAFIL HYDROCHLORIDE (LEVITRA) [Concomitant]
     Indication: PRODUCT USED FOR UNKNOWN INDICATION
  19. THYMOGLOBULIN [Suspect]
     Dosage: UNK
     Route: 042
     Dates: start: 20100525, end: 20100525
  20. CITALOPRAM HYDROBROMIDE [Concomitant]
     Indication: PRODUCT USED FOR UNKNOWN INDICATION
     Dosage: 30 MG, QD
     Route: 065
  21. CYCLOSPORINE [Concomitant]
     Indication: BONE MARROW CONDITIONING REGIMEN
     Dosage: 25 MG, BID
     Route: 065
  22. FUROSEMIDE [Concomitant]
     Indication: PRODUCT USED FOR UNKNOWN INDICATION
     Dosage: 10 MG, QD
     Route: 065
  23. LORAZEPAM [Concomitant]
     Indication: NAUSEA
     Dosage: 2.0 MG, PRN
     Route: 065
  24. CYANOCOBALAMIN [Concomitant]
     Indication: PRODUCT USED FOR UNKNOWN INDICATION
     Dosage: 1000 MCG, QD
     Route: 065
  25. TRAZODONE HCL [Concomitant]
     Indication: PRODUCT USED FOR UNKNOWN INDICATION
  26. ACYCLOVIR [Concomitant]
     Indication: PRODUCT USED FOR UNKNOWN INDICATION
  27. ALBUTEROL SULFATE AUTOHALER [Concomitant]
     Indication: PRODUCT USED FOR UNKNOWN INDICATION
  28. CLOFARABINE [Concomitant]
     Indication: BONE MARROW CONDITIONING REGIMEN
     Dosage: 40 MG/M2, QD
     Route: 042
     Dates: start: 20100529, end: 20100602
  29. FOLATE [Concomitant]
     Indication: PRODUCT USED FOR UNKNOWN INDICATION
     Dosage: 2 MG, QD
     Route: 065
  30. OXYCODONE HCL [Concomitant]
     Indication: PAIN
     Dosage: 10 MG, PRN
     Route: 065
  31. SPACER [Concomitant]
     Indication: PRODUCT USED FOR UNKNOWN INDICATION
  32. THYMOGLOBULIN [Suspect]
     Dosage: UNK
     Route: 042
     Dates: start: 20100527, end: 20100527
  33. THYMOGLOBULIN [Suspect]
     Dosage: UNK
     Route: 042
     Dates: start: 20100528, end: 20100528
  34. FLUCONAZOLE [Concomitant]
     Indication: PRODUCT USED FOR UNKNOWN INDICATION
     Dosage: 200 MG, QD
     Route: 065
  35. NICOTINE [Concomitant]
     Indication: NICOTINE DEPENDENCE
     Dosage: 2 MG, PRN
     Route: 048
  36. CARVEDILOL [Concomitant]
     Indication: PRODUCT USED FOR UNKNOWN INDICATION

REACTIONS (5)
  - HYPOXIA [None]
  - HAEMATOCHEZIA [None]
  - PNEUMONIA [None]
  - ABDOMINAL PAIN UPPER [None]
  - RESPIRATORY TRACT INFECTION [None]
